FAERS Safety Report 6653360-5 (Version None)
Quarter: 2010Q1

REPORT INFORMATION
  Report Type: 
  Country: None (occurrence: None)
  Receive Date: 20100326
  Receipt Date: 20100315
  Transmission Date: 20100710
  Serious: Yes (Hospitalization)
  Sender: FDA-Public Use
  Company Number: PHHY2010US13048

PATIENT
  Sex: Male

DRUGS (2)
  1. GLEEVEC [Suspect]
     Indication: GASTROINTESTINAL STROMAL TUMOUR
     Dosage: 400 MG DAILY
     Route: 048
     Dates: start: 20060109
  2. GLEEVEC [Suspect]
     Dosage: 800 MG, UNK

REACTIONS (3)
  - ABSCESS DRAINAGE [None]
  - DIVERTICULITIS [None]
  - LIVER ABSCESS [None]
